FAERS Safety Report 12758361 (Version 1)
Quarter: 2016Q3

REPORT INFORMATION
  Report Type: Spontaneous
  Country: US (occurrence: US)
  Receive Date: 20160917
  Receipt Date: 20160917
  Transmission Date: 20161109
  Serious: No
  Sender: FDA-Public Use
  Company Number: None

PATIENT
  Age: 35 Year
  Sex: Male
  Weight: 90 kg

DRUGS (1)
  1. CHANTIX [Suspect]
     Active Substance: VARENICLINE TARTRATE
     Indication: SMOKING CESSATION THERAPY

REACTIONS (7)
  - Depression [None]
  - Nightmare [None]
  - Withdrawal syndrome [None]
  - Suicidal ideation [None]
  - Sleep disorder [None]
  - Drug ineffective [None]
  - Malaise [None]

NARRATIVE: CASE EVENT DATE: 20150829
